FAERS Safety Report 9925955 (Version 2)
Quarter: 2014Q1

REPORT INFORMATION
  Report Type: Spontaneous
  Country: US (occurrence: US)
  Receive Date: 20140226
  Receipt Date: 20140226
  Transmission Date: 20141002
  Serious: No
  Sender: FDA-Public Use
  Company Number: US-BRACCO-009450

PATIENT
  Sex: Female

DRUGS (1)
  1. ISOVUE 370 [Suspect]
     Indication: COMPUTERISED TOMOGRAM
     Route: 042
     Dates: start: 20130514, end: 20130514

REACTIONS (2)
  - Lymphadenopathy [Recovered/Resolved]
  - Dysgeusia [Recovered/Resolved]
